FAERS Safety Report 24548128 (Version 2)
Quarter: 2024Q4

REPORT INFORMATION
  Report Type: Spontaneous
  Country: ES (occurrence: ES)
  Receive Date: 20241025
  Receipt Date: 20241209
  Transmission Date: 20250115
  Serious: Yes (Hospitalization, Other)
  Sender: MERCK
  Company Number: ES-ROCHE-10000094608

PATIENT
  Age: 61 Year
  Sex: Male
  Weight: 75 kg

DRUGS (19)
  1. PEMBROLIZUMAB [Suspect]
     Active Substance: PEMBROLIZUMAB
     Indication: Lung cancer metastatic
     Dosage: 200 MILLILITER, Q3W
     Route: 042
     Dates: start: 20230615, end: 20240411
  2. TIRAGOLUMAB [Suspect]
     Active Substance: TIRAGOLUMAB
     Indication: Lung cancer metastatic
     Dosage: UNK
     Route: 042
     Dates: start: 20230615, end: 20240411
  3. CARBOPLATIN [Suspect]
     Active Substance: CARBOPLATIN
     Indication: Lung cancer metastatic
     Dosage: 610 MILLIGRAM, Q3W
     Route: 042
     Dates: start: 20230615, end: 20230817
  4. PEMETREXED [Suspect]
     Active Substance: PEMETREXED
     Indication: Lung cancer metastatic
     Dosage: 995 MILLIGRAM, Q3W
     Route: 042
     Dates: start: 20230615, end: 20240411
  5. ATEZOLIZUMAB [Suspect]
     Active Substance: ATEZOLIZUMAB
     Indication: Lung cancer metastatic
     Dosage: UNK
     Route: 042
     Dates: start: 20230615, end: 20240411
  6. FOLIC ACID [Concomitant]
     Active Substance: FOLIC ACID
     Dosage: 5 MILLIGRAM, QD
     Route: 048
     Dates: start: 20230523
  7. VITAMIN B12 [Concomitant]
     Active Substance: CYANOCOBALAMIN
     Route: 030
     Dates: start: 20230525
  8. VILANTEROL [Concomitant]
     Active Substance: VILANTEROL
     Route: 045
     Dates: start: 20230530
  9. UMECLIDINIUM [Concomitant]
     Active Substance: UMECLIDINIUM
     Route: 045
     Dates: start: 20230530
  10. DEXAMETHASONE [Concomitant]
     Active Substance: DEXAMETHASONE
     Route: 042
     Dates: start: 20230615
  11. ONDANSETRON HYDROCHLORIDE [Concomitant]
     Active Substance: ONDANSETRON HYDROCHLORIDE
     Dosage: 8 MILLIGRAM, Q3W
     Route: 042
     Dates: start: 20230615
  12. CARBOXYMETHYLCELLULOSE SODIUM [Concomitant]
     Active Substance: CARBOXYMETHYLCELLULOSE SODIUM
     Indication: Eye pruritus
     Route: 047
     Dates: start: 20230726
  13. NICOTINE [Concomitant]
     Active Substance: NICOTINE
     Dates: start: 20230810
  14. ALBUTEROL [Concomitant]
     Active Substance: ALBUTEROL
     Indication: Oropharyngeal pain
     Dates: start: 20240313
  15. ACETAMINOPHEN [Concomitant]
     Active Substance: ACETAMINOPHEN
     Route: 048
     Dates: start: 20230816
  16. PIPERACILLIN [Concomitant]
     Active Substance: PIPERACILLIN
     Indication: Respiratory tract infection
     Route: 042
     Dates: start: 20240414
  17. TAZOBACTAM [Concomitant]
     Active Substance: TAZOBACTAM
     Indication: Respiratory tract infection
     Route: 042
     Dates: start: 20240414
  18. IPRATROPIUM BROMIDE [Concomitant]
     Active Substance: IPRATROPIUM BROMIDE
     Indication: Bronchospasm
     Dates: start: 20240402
  19. PREDNISONE [Concomitant]
     Active Substance: PREDNISONE
     Indication: Bronchospasm
     Route: 048
     Dates: start: 20240409

REACTIONS (1)
  - Febrile neutropenia [Recovered/Resolved]

NARRATIVE: CASE EVENT DATE: 20240604
